FAERS Safety Report 7733992-3 (Version None)
Quarter: 2011Q3

REPORT INFORMATION
  Report Type: 
  Country: None (occurrence: None)
  Receive Date: 20110907
  Receipt Date: 20110825
  Transmission Date: 20111222
  Serious: Yes (Other)
  Sender: FDA-Public Use
  Company Number: CA-ELI_LILLY_AND_COMPANY-CA201108007675

PATIENT
  Age: 74 Year
  Sex: Female

DRUGS (9)
  1. ZOPICLONE [Concomitant]
  2. FORTEO [Suspect]
     Indication: OSTEOPOROSIS
     Dosage: 20 UG, QD
     Route: 058
     Dates: start: 20110804, end: 20110824
  3. MIACALCIN [Concomitant]
     Dosage: UNK
  4. PREDNISONE [Concomitant]
  5. ZOCOR [Concomitant]
  6. VITAMIN E [Concomitant]
  7. METHOTREXATE [Concomitant]
  8. CALCIUM + VITAMIN D [Concomitant]
  9. Q10 [Concomitant]

REACTIONS (2)
  - GASTRECTOMY [None]
  - ADVERSE EVENT [None]
